FAERS Safety Report 6634685-6 (Version None)
Quarter: 2010Q1

REPORT INFORMATION
  Report Type: 
  Country: None (occurrence: None)
  Receive Date: 20100315
  Receipt Date: 20100309
  Transmission Date: 20100710
  Serious: Yes (Disabling)
  Sender: FDA-Public Use
  Company Number: US-BAYER-200942257NA

PATIENT
  Age: 50 Year
  Sex: Female

DRUGS (2)
  1. CIPRO [Suspect]
     Indication: RHINITIS
     Dosage: DISPENSE #:28
     Route: 048
     Dates: start: 20091008, end: 20091011
  2. MULTI-VITAMINS [Concomitant]
     Route: 065

REACTIONS (7)
  - ARTHRALGIA [None]
  - BURNING SENSATION [None]
  - GAIT DISTURBANCE [None]
  - MUSCLE SPASMS [None]
  - PAIN IN EXTREMITY [None]
  - SENSORY DISTURBANCE [None]
  - WALKING AID USER [None]
